FAERS Safety Report 15769006 (Version 1)
Quarter: 2018Q4

REPORT INFORMATION
  Report Type: Spontaneous
  Country: US (occurrence: US)
  Receive Date: 20181228
  Receipt Date: 20181228
  Transmission Date: 20190205
  Serious: No
  Sender: FDA-Public Use
  Company Number: US-JNJFOC-20181137167

PATIENT
  Age: 78 Year
  Sex: Male

DRUGS (1)
  1. IMBRUVICA [Suspect]
     Active Substance: IBRUTINIB
     Indication: PRODUCT USED FOR UNKNOWN INDICATION
     Dosage: 420 MG, QD
     Route: 048
     Dates: start: 20180726

REACTIONS (5)
  - Muscle spasms [Not Recovered/Not Resolved]
  - Skin discolouration [Unknown]
  - Gingival bleeding [Unknown]
  - Arthralgia [Unknown]
  - Dry mouth [Unknown]

NARRATIVE: CASE EVENT DATE: 201807
